FAERS Safety Report 8289116-X (Version None)
Quarter: 2012Q2

REPORT INFORMATION
  Report Type: 
  Country: None (occurrence: None)
  Receive Date: 20120417
  Receipt Date: 20120411
  Transmission Date: 20120825
  Serious: Yes (Death)
  Sender: FDA-Public Use
  Company Number: JP-JNJFOC-20120406454

PATIENT

DRUGS (1)
  1. GALANTAMINE HYROBROMIDE [Suspect]
     Indication: DEMENTIA
     Route: 065

REACTIONS (1)
  - DEATH [None]
